FAERS Safety Report 7956753-9 (Version None)
Quarter: 2011Q4

REPORT INFORMATION
  Report Type: 
  Country: None (occurrence: None)
  Receive Date: 20111205
  Receipt Date: 20111130
  Transmission Date: 20120403
  Serious: No
  Sender: FDA-Public Use
  Company Number: US-B.I. PHARMACEUTICALS,INC./RIDGEFIELD-2011-BP-27226BP

PATIENT
  Age: 78 Year
  Sex: Male

DRUGS (4)
  1. LOTREL [Concomitant]
     Indication: HYPERTENSION
     Route: 048
     Dates: start: 20010101
  2. TRADJENTA [Suspect]
     Indication: TYPE 2 DIABETES MELLITUS
     Dosage: 5 MG
     Route: 048
     Dates: end: 20111130
  3. ASPIRIN [Concomitant]
     Indication: PROPHYLAXIS
     Dosage: 81 MG
     Route: 048
     Dates: start: 20010101
  4. METFORMIN HCL [Concomitant]
     Indication: DIABETES MELLITUS
     Dosage: 1000 MG
     Route: 048
     Dates: start: 20010101

REACTIONS (4)
  - OROPHARYNGEAL PAIN [None]
  - RHINORRHOEA [None]
  - PRURITUS [None]
  - DRY SKIN [None]
